FAERS Safety Report 10380697 (Version 1)
Quarter: 2014Q1

REPORT INFORMATION
  Report Type: Spontaneous
  Country: US (occurrence: None)
  Receive Date: 20140306
  Receipt Date: 20140306
  Transmission Date: 20141002
  Serious: Yes (Other)
  Sender: FDA-Public Use
  Company Number: 163-21880-13084054

PATIENT
  Age: 75 Year
  Sex: Male
  Weight: 90.7 kg

DRUGS (12)
  1. REVLIMID (LENALIDOMIDE) (25 MILLIGRAM, CAPSULES) [Suspect]
     Indication: PLASMA CELL MYELOMA
     Route: 048
     Dates: start: 201008
  2. DEXAMETHASONE [Concomitant]
  3. WARFARIN SODIUM [Concomitant]
  4. HYDROCHLOROTHIAZIDE [Concomitant]
  5. ACYCLOVIR (ACICLOVIR) (ACICLOVIR) [Concomitant]
  6. FOLIC ACID [Concomitant]
  7. LEVITRA (VARDENAFIL HYDROCHLORIDE) (VARDENAFIL HYDROCHLORIDE) [Concomitant]
  8. OMEGA 3 (FISH OIL) [Concomitant]
  9. MULTIVITAMINS [Concomitant]
  10. ALBUTEROL (SALBUTAMOL) [Concomitant]
  11. MONOPRIL (FOSINOPRIL SODIUM) [Concomitant]
  12. ZOCOR (SIMVASTATIN) [Concomitant]

REACTIONS (1)
  - Thrombosis [None]
